FAERS Safety Report 21481643 (Version 1)
Quarter: 2022Q4

REPORT INFORMATION
  Report Type: Spontaneous
  Country: CN (occurrence: CN)
  Receive Date: 20221020
  Receipt Date: 20221020
  Transmission Date: 20230113
  Serious: Yes (Other)
  Sender: FDA-Public Use
  Company Number: None

PATIENT
  Age: 49 Year
  Sex: Female
  Weight: 58 kg

DRUGS (6)
  1. CYCLOPHOSPHAMIDE [Suspect]
     Active Substance: CYCLOPHOSPHAMIDE
     Indication: Breast cancer female
     Dosage: 900 MG, POWDER INJECTION, QD, DILUTED WITH NS (45 ML), FIRST CYCLE OF CHEMOTHERAPY
     Route: 042
     Dates: start: 20220719, end: 20220719
  2. CYCLOPHOSPHAMIDE [Suspect]
     Active Substance: CYCLOPHOSPHAMIDE
     Indication: Chemotherapy
  3. SODIUM CHLORIDE [Suspect]
     Active Substance: SODIUM CHLORIDE
     Indication: Medication dilution
     Dosage: 45 ML, QD, DILUTED IN CYCLOPHOSPHAMIDE (900 MG), FIRST CYCLE OF CHEMOTHERAPY
     Route: 042
     Dates: start: 20220719, end: 20220719
  4. SODIUM CHLORIDE [Suspect]
     Active Substance: SODIUM CHLORIDE
     Dosage: 100 ML, QD, DILUTED IN EPIRUBICIN HYDROCHLORIDE (144 MG), FIRST CYCLE OF CHEMOTHERAPY
     Route: 041
     Dates: start: 20220719, end: 20220719
  5. EPIRUBICIN HYDROCHLORIDE [Suspect]
     Active Substance: EPIRUBICIN HYDROCHLORIDE
     Indication: Breast cancer female
     Dosage: 144 MG, QD, DILUTED WITH NS (100 ML), FIRST CYCLE OF CHEMOTHERAPY
     Route: 041
     Dates: start: 20220719, end: 20220719
  6. EPIRUBICIN HYDROCHLORIDE [Suspect]
     Active Substance: EPIRUBICIN HYDROCHLORIDE
     Indication: Chemotherapy

REACTIONS (2)
  - White blood cell count decreased [Recovered/Resolved]
  - Agranulocytosis [Recovered/Resolved]

NARRATIVE: CASE EVENT DATE: 20220726
